FAERS Safety Report 18959224 (Version 9)
Quarter: 2024Q1

REPORT INFORMATION
  Report Type: Report from Study
  Country: US (occurrence: US)
  Receive Date: 20210302
  Receipt Date: 20240108
  Transmission Date: 20240410
  Serious: Yes (Other)
  Sender: FDA-Public Use
  Company Number: US-SANOFI-00487148

PATIENT
  Age: 72 Year
  Sex: Male

DRUGS (7)
  1. INSULIN GLARGINE [Suspect]
     Active Substance: INSULIN GLARGINE
     Indication: Type 2 diabetes mellitus
     Dosage: UNK
  2. INSULIN GLARGINE [Suspect]
     Active Substance: INSULIN GLARGINE
     Indication: Hyperglycaemia
  3. APIDRA [Suspect]
     Active Substance: INSULIN GLULISINE
     Indication: Diabetes mellitus
     Dosage: 20 IU, TID
     Route: 065
  4. APIDRA [Suspect]
     Active Substance: INSULIN GLULISINE
     Indication: Type 2 diabetes mellitus
     Dosage: TODAY HE TOOK 9 UNITS THIS MORNING, THEN 11 UNITS, THEN 2 AT LUNCH TIME, AND WAS GOING TO TAKE ABOUT
     Route: 065
  5. APIDRA [Suspect]
     Active Substance: INSULIN GLULISINE
     Dosage: 15 IU, TID
     Route: 065
  6. TRESIBA [Suspect]
     Active Substance: INSULIN DEGLUDEC
     Dosage: UNK
     Route: 065
  7. IMURAN [Suspect]
     Active Substance: AZATHIOPRINE
     Indication: Crohn^s disease
     Dosage: UNK
     Route: 065

REACTIONS (7)
  - Pancreatic failure [Unknown]
  - Pancreatitis [Unknown]
  - Blood insulin decreased [Unknown]
  - Illness [Unknown]
  - Tinnitus [Unknown]
  - Blood glucose abnormal [Unknown]
  - Drug ineffective [Unknown]
